FAERS Safety Report 7792564-5 (Version None)
Quarter: 2011Q4

REPORT INFORMATION
  Report Type: 
  Country: None (occurrence: None)
  Receive Date: 20111003
  Receipt Date: 20110923
  Transmission Date: 20120403
  Serious: Yes (Hospitalization)
  Sender: FDA-Public Use
  Company Number: US-ASTRAZENECA-2011SE51226

PATIENT
  Age: 51 Year
  Sex: Female

DRUGS (2)
  1. SYMBICORT [Suspect]
     Route: 055
  2. HEARTBURN MED [Concomitant]

REACTIONS (3)
  - CARDIAC DISORDER [None]
  - DRUG DOSE OMISSION [None]
  - BRONCHIOLITIS [None]
